FAERS Safety Report 4957456-5 (Version None)
Quarter: 2006Q1

REPORT INFORMATION
  Report Type: 
  Country: None (occurrence: None)
  Receive Date: 20060330
  Receipt Date: 20060315
  Transmission Date: 20060701
  Serious: Yes (Disabling, Congenital Anomaly, Other)
  Sender: FDA-Public Use
  Company Number: PHRM2006FR01095

PATIENT
  Sex: Male

DRUGS (3)
  1. TEGRETOL [Suspect]
     Route: 064
  2. NEURONTIN [Suspect]
     Route: 064
  3. XANAX [Suspect]
     Route: 064

REACTIONS (10)
  - ABNORMAL BEHAVIOUR [None]
  - BRUXISM [None]
  - CAFE AU LAIT SPOTS [None]
  - DEVELOPMENTAL DELAY [None]
  - DRUG EXPOSURE DURING PREGNANCY [None]
  - FACIAL DYSMORPHISM [None]
  - FOETAL MACROSOMIA [None]
  - PSYCHOMOTOR HYPERACTIVITY [None]
  - STEREOTYPY [None]
  - TOE DEFORMITY [None]
